FAERS Safety Report 5207780-6 (Version None)
Quarter: 2006Q4

REPORT INFORMATION
  Report Type: 
  Country: None (occurrence: None)
  Receive Date: 20061030
  Receipt Date: 20060808
  Transmission Date: 20070319
  Serious: No
  Sender: FDA-Public Use
  Company Number: 255945

PATIENT
  Age: 70 Year
  Sex: Female
  Weight: 59.9 kg

DRUGS (4)
  1. LEVEMIR [Suspect]
     Indication: INSULIN-REQUIRING TYPE II DIABETES MELLITUS
     Dosage: 52 IU, QD, SUBCUTANEOUS
     Route: 058
     Dates: start: 20060601
  2. LANTUS [Concomitant]
  3. AMARYL [Concomitant]
  4. ASPIRIN [Concomitant]

REACTIONS (3)
  - BLOOD GLUCOSE INCREASED [None]
  - INJECTION SITE BRUISING [None]
  - INJECTION SITE HAEMORRHAGE [None]
